FAERS Safety Report 6121495-1 (Version None)
Quarter: 2009Q1

REPORT INFORMATION
  Report Type: 
  Country: None (occurrence: None)
  Receive Date: 20090313
  Receipt Date: 20090306
  Transmission Date: 20090719
  Serious: Yes (Death)
  Sender: FDA-Public Use
  Company Number: US025602

PATIENT
  Sex: Male

DRUGS (1)
  1. ACTIQ [Suspect]
     Indication: HEADACHE
     Dosage: BUCCAL
     Route: 002

REACTIONS (2)
  - DRUG DIVERSION [None]
  - RESPIRATORY FAILURE [None]
